FAERS Safety Report 24590068 (Version 1)
Quarter: 2024Q4

REPORT INFORMATION
  Report Type: Spontaneous
  Country: AU (occurrence: AU)
  Receive Date: 20241107
  Receipt Date: 20241107
  Transmission Date: 20250114
  Serious: Yes (Other)
  Sender: NOVARTIS
  Company Number: AU-002147023-NVSC2024AU213054

PATIENT
  Age: 36 Year
  Sex: Male
  Weight: 66 kg

DRUGS (2)
  1. ENTRESTO [Suspect]
     Active Substance: SACUBITRIL\VALSARTAN
     Indication: Ejection fraction
     Dosage: UNK (97/103)
     Route: 048
     Dates: start: 20220901, end: 20241014
  2. ENTRESTO [Suspect]
     Active Substance: SACUBITRIL\VALSARTAN
     Indication: Chronic kidney disease

REACTIONS (5)
  - Rash [Recovering/Resolving]
  - Malignant melanoma [Unknown]
  - Eczema [Unknown]
  - Drug eruption [Unknown]
  - Off label use [Unknown]

NARRATIVE: CASE EVENT DATE: 20241014
